FAERS Safety Report 8396406-9 (Version None)
Quarter: 2012Q1

REPORT INFORMATION
  Report Type: 
  Country: None (occurrence: None)
  Receive Date: 20120323
  Receipt Date: 20110314
  Transmission Date: 20120608
  Serious: Yes (Hospitalization)
  Sender: FDA-Public Use
  Company Number: 163-21880-11031673

PATIENT
  Age: 80 Year
  Sex: Female
  Weight: 67.1324 kg

DRUGS (14)
  1. POTASSIUM CHLORIDE [Concomitant]
  2. LASIX [Concomitant]
  3. DEXAMETHASONE [Concomitant]
  4. MEGACE [Concomitant]
  5. NEXIUM [Concomitant]
  6. OXYCODONE HCL [Concomitant]
  7. REVLIMID [Suspect]
     Indication: MULTIPLE MYELOMA
     Dosage: 10 MG, 1 IN 1 D, PO, 10 MG, 1 IN 1 D, PO
     Route: 048
     Dates: start: 20090101
  8. REVLIMID [Suspect]
     Indication: MULTIPLE MYELOMA
     Dosage: 10 MG, 1 IN 1 D, PO, 10 MG, 1 IN 1 D, PO
     Route: 048
     Dates: start: 20110104, end: 20110303
  9. ASPIRIN [Concomitant]
  10. MS CONTIN [Concomitant]
  11. SIMVASTATIN [Concomitant]
  12. ACYCLOVIR [Concomitant]
  13. FERROUS SULFATE TAB [Concomitant]
  14. ZOMETA [Concomitant]

REACTIONS (1)
  - THROMBOSIS [None]
